FAERS Safety Report 20134189 (Version 3)
Quarter: 2022Q1

REPORT INFORMATION
  Report Type: Spontaneous
  Country: BR (occurrence: BR)
  Receive Date: 20211201
  Receipt Date: 20220208
  Transmission Date: 20220423
  Serious: Yes (Other)
  Sender: FDA-Public Use
  Company Number: BR-NOVARTISPH-NVSC2021BR267661

PATIENT
  Sex: Male
  Weight: 71.5 kg

DRUGS (2)
  1. TRILEPTAL [Suspect]
     Active Substance: OXCARBAZEPINE
     Indication: Seizure
     Dosage: 600 MG, TID (1 TABLET AT 08:00, 1 TABLET AT 21:00, 1 TABLET AT 22:00)
     Route: 048
     Dates: start: 2010
  2. TRILEPTAL [Suspect]
     Active Substance: OXCARBAZEPINE
     Dosage: 300 MG, QD (1 TABLET AT 08:00)
     Route: 048
     Dates: start: 2010

REACTIONS (6)
  - Seizure [Unknown]
  - Head discomfort [Recovered/Resolved]
  - Balance disorder [Recovered/Resolved]
  - Dizziness [Recovered/Resolved]
  - Diplopia [Recovered/Resolved]
  - Incorrect dose administered [Unknown]
